FAERS Safety Report 4826933-X (Version None)
Quarter: 2005Q4

REPORT INFORMATION
  Report Type: 
  Country: None (occurrence: None)
  Receive Date: 20051014
  Receipt Date: 20050721
  Transmission Date: 20060501
  Serious: No
  Sender: FDA-Public Use
  Company Number: 2005SP001985

PATIENT
  Age: 69 Year
  Sex: Female
  Weight: 117.9352 kg

DRUGS (11)
  1. LUNESTA [Suspect]
     Indication: INSOMNIA
     Dosage: SEE IMAGE
     Route: 048
     Dates: start: 20050101, end: 20050101
  2. LUNESTA [Suspect]
     Indication: INSOMNIA
     Dosage: SEE IMAGE
     Route: 048
     Dates: start: 20050604, end: 20050101
  3. LUNESTA [Suspect]
     Indication: INSOMNIA
     Dosage: SEE IMAGE
     Route: 048
     Dates: start: 20050101
  4. DOXEPIN HCL [Concomitant]
  5. LOVASTATIN [Concomitant]
  6. LEVOTHROID [Concomitant]
  7. BENICAR [Concomitant]
  8. PULMICORT [Concomitant]
  9. ACTONEL [Concomitant]
  10. XALATAN [Concomitant]
  11. AMBIEN [Concomitant]

REACTIONS (2)
  - DYSGEUSIA [None]
  - INSOMNIA [None]
